FAERS Safety Report 24011394 (Version 4)
Quarter: 2025Q2

REPORT INFORMATION
  Report Type: Spontaneous
  Country: US (occurrence: US)
  Receive Date: 20240625
  Receipt Date: 20250610
  Transmission Date: 20250716
  Serious: Yes (Other)
  Sender: PFIZER
  Company Number: US-PFIZER INC-PV202400072279

PATIENT
  Age: 63 Year
  Sex: Male

DRUGS (3)
  1. CIBINQO [Suspect]
     Active Substance: ABROCITINIB
     Indication: Rash erythematous
     Route: 048
  2. CIBINQO [Suspect]
     Active Substance: ABROCITINIB
     Route: 048
  3. CIBINQO [Suspect]
     Active Substance: ABROCITINIB
     Dosage: 200MG TABLET ONCE DAILY
     Route: 048

REACTIONS (4)
  - Brain operation [Unknown]
  - Paraesthesia [Unknown]
  - Off label use [Unknown]
  - Rash [Unknown]
